FAERS Safety Report 25818247 (Version 1)
Quarter: 2025Q3

REPORT INFORMATION
  Report Type: Spontaneous
  Country: US (occurrence: None)
  Receive Date: 20250918
  Receipt Date: 20250918
  Transmission Date: 20251021
  Serious: Yes (Hospitalization)
  Sender: FDA-CTU
  Company Number: None

PATIENT
  Age: 50 Year
  Sex: Male

DRUGS (1)
  1. ERLOTINIB HYDROCHLORIDE [Suspect]
     Active Substance: ERLOTINIB HYDROCHLORIDE
     Dates: end: 20250908

REACTIONS (3)
  - Procedural complication [None]
  - Iatrogenic injury [None]
  - Pneumothorax [None]

NARRATIVE: CASE EVENT DATE: 20250912
